FAERS Safety Report 21603331 (Version 1)
Quarter: 2022Q4

REPORT INFORMATION
  Report Type: Spontaneous
  Country: US (occurrence: None)
  Receive Date: 20221115
  Receipt Date: 20221115
  Transmission Date: 20230112
  Serious: No
  Sender: FDA-Public Use
  Company Number: None

PATIENT
  Age: 82 Year
  Sex: Male
  Weight: 77.56 kg

DRUGS (9)
  1. ABIRATERONE [Suspect]
     Active Substance: ABIRATERONE
     Indication: Prostate cancer
     Dosage: FREQUENCY : DAILY;?
     Route: 048
     Dates: start: 20210803
  2. ASPIRIN [Concomitant]
  3. CALCIUM ELIGARD [Concomitant]
  4. ELIQUIS [Concomitant]
  5. FAMOTIDINE [Concomitant]
  6. PANTOPRAZOLE [Concomitant]
  7. PREDNISONE [Concomitant]
  8. SIMVASTATIN [Concomitant]
  9. SOTALOL [Concomitant]
     Active Substance: SOTALOL

REACTIONS (1)
  - Prostatic specific antigen increased [None]
